FAERS Safety Report 17047371 (Version 1)
Quarter: 2019Q4

REPORT INFORMATION
  Report Type: Spontaneous
  Country: GR (occurrence: GR)
  Receive Date: 20191119
  Receipt Date: 20191119
  Transmission Date: 20200122
  Serious: Yes (Hospitalization)
  Sender: FDA-Public Use
  Company Number: NVSC2019GR036747

PATIENT
  Age: 33 Year
  Sex: Female

DRUGS (1)
  1. AMOXICILLIN TRIHYDRATE,POTASSIUM CLAVULANATE [Suspect]
     Active Substance: AMOXICILLIN\CLAVULANATE POTASSIUM
     Indication: BRONCHITIS
     Dosage: UNK
     Route: 065

REACTIONS (8)
  - Skin plaque [Unknown]
  - Abscess [Unknown]
  - Pruritus [Recovering/Resolving]
  - Rash [Recovered/Resolved]
  - Vasculitis [Unknown]
  - Condition aggravated [Unknown]
  - Acute generalised exanthematous pustulosis [Unknown]
  - Oedema [Unknown]
